FAERS Safety Report 9931698 (Version 1)
Quarter: 2014Q1

REPORT INFORMATION
  Report Type: Spontaneous
  Country: US (occurrence: None)
  Receive Date: 20140227
  Receipt Date: 20140227
  Transmission Date: 20141002
  Serious: Yes (Other)
  Sender: FDA-Public Use
  Company Number: None

PATIENT
  Age: 70 Year
  Sex: Male
  Weight: 68.95 kg

DRUGS (2)
  1. EXTRA STRENGTH ACETAMINOPHEN [Suspect]
     Indication: HEADACHE
     Route: 048
     Dates: start: 20140210, end: 20140210
  2. EXTRA STRENGTH ACETAMINOPHEN [Suspect]
     Indication: PYREXIA
     Route: 048
     Dates: start: 20140210, end: 20140210

REACTIONS (3)
  - Tremor [None]
  - Polydipsia [None]
  - Insomnia [None]
